FAERS Safety Report 20482974 (Version 2)
Quarter: 2023Q4

REPORT INFORMATION
  Report Type: Spontaneous
  Country: GB (occurrence: None)
  Receive Date: 20220217
  Receipt Date: 20231219
  Transmission Date: 20240110
  Serious: Yes (Hospitalization, Other)
  Sender: FDA-Public Use
  Company Number: GB-ROCHE-3024739

PATIENT
  Sex: Female

DRUGS (1)
  1. PHESGO [Suspect]
     Active Substance: HYALURONIDASE-ZZXF\PERTUZUMAB\TRASTUZUMAB
     Indication: Breast cancer
     Dosage: CYCLE 72 600MG/600MG
     Route: 058
     Dates: start: 201910

REACTIONS (5)
  - Flank pain [Unknown]
  - Neoplasm [Unknown]
  - Back pain [Unknown]
  - Wrist fracture [Not Recovered/Not Resolved]
  - Tooth abscess [Unknown]
